FAERS Safety Report 9034278 (Version 1)
Quarter: 2013Q1

REPORT INFORMATION
  Report Type: Spontaneous
  Country: AT (occurrence: AT)
  Receive Date: 20130128
  Receipt Date: 20130128
  Transmission Date: 20140127
  Serious: Yes (Death)
  Sender: FDA-Public Use
  Company Number: AT-AMGEN-AUTSP2011063275

PATIENT
  Age: 63 Year
  Sex: Male

DRUGS (3)
  1. VECTIBIX [Suspect]
     Indication: COLON CANCER
     Dosage: 3 MG/KG, UNK
     Dates: start: 20110414
  2. CAMPTO [Concomitant]
     Dosage: 3 MG/KG, UNK
     Dates: start: 20110414
  3. FOLFIRI [Concomitant]
     Dosage: UNK
     Dates: start: 20110512

REACTIONS (1)
  - Death [Fatal]
